FAERS Safety Report 23556947 (Version 1)
Quarter: 2024Q1

REPORT INFORMATION
  Report Type: Spontaneous
  Country: US (occurrence: US)
  Receive Date: 20240223
  Receipt Date: 20240223
  Transmission Date: 20240410
  Serious: No
  Sender: FDA-Public Use
  Company Number: US-BIOCON BIOLOGICS LIMITED-2023M1101265

PATIENT
  Age: 55 Year
  Sex: Male
  Weight: 102 kg

DRUGS (3)
  1. SEMGLEE (INSULIN GLARGINE-YFGN) [Suspect]
     Active Substance: INSULIN GLARGINE-YFGN
     Indication: Type 2 diabetes mellitus
     Dosage: UNK (55 UNITS/ML), QD
     Route: 058
     Dates: start: 20230101
  2. SEMGLEE (INSULIN GLARGINE-YFGN) [Suspect]
     Active Substance: INSULIN GLARGINE-YFGN
     Dosage: UNK, (55 UNITS/ML), QD
     Route: 058
     Dates: start: 20230101
  3. DEVICE [Suspect]
     Active Substance: DEVICE
     Indication: Product used for unknown indication

REACTIONS (2)
  - Device issue [Unknown]
  - Product quality issue [Unknown]
